FAERS Safety Report 8872308 (Version 1)
Quarter: 2012Q4

REPORT INFORMATION
  Report Type: 
  Country: US (occurrence: US)
  Receive Date: 20121026
  Receipt Date: 20121026
  Transmission Date: 20130627
  Serious: No
  Sender: FDA-Public Use
  Company Number: US-AMGEN-USASP2012049254

PATIENT
  Age: 64 Year
  Sex: Female
  Weight: 65.76 kg

DRUGS (11)
  1. ENBREL [Suspect]
     Indication: PRODUCT USED FOR UNKNOWN INDICATION
     Dosage: 50 mg, qwk
     Route: 058
  2. METHOTREXAT                        /00113801/ [Concomitant]
     Dosage: 20 mg, UNK
  3. METHOCARBAMOL [Concomitant]
     Dosage: 500 mg, UNK
  4. SIMVASTATIN [Concomitant]
     Dosage: 10 mg, UNK
  5. FOLIC ACID [Concomitant]
     Dosage: UNK
  6. RANITIDIN [Concomitant]
     Dosage: 150 mg, UNK
  7. CALCIUM D                          /00944201/ [Concomitant]
     Dosage: 750 mg, UNK
  8. VITAMIN K                          /00032401/ [Concomitant]
     Dosage: 750 mg, UNK
  9. FISH OIL [Concomitant]
     Dosage: 1000 mg, UNK
  10. ASA [Concomitant]
     Dosage: 160 mg, UNK (FREE CHW 160MG J R)
  11. MULTIVITAMIN                       /00097801/ [Concomitant]

REACTIONS (2)
  - Benign lung neoplasm [Unknown]
  - Cough [Unknown]
